FAERS Safety Report 8140602-2 (Version None)
Quarter: 2012Q1

REPORT INFORMATION
  Report Type: 
  Country: None (occurrence: None)
  Receive Date: 20120216
  Receipt Date: 20120209
  Transmission Date: 20120608
  Serious: Yes (Other)
  Sender: FDA-Public Use
  Company Number: BR-PFIZER INC-2012036634

PATIENT
  Age: 25 Year
  Sex: Male

DRUGS (1)
  1. XALATAN [Suspect]
     Indication: INFECTION
     Dosage: 3 UG, 1X/DAY
     Route: 047

REACTIONS (2)
  - EYE DISORDER [None]
  - DIABETES MELLITUS [None]
